APPROVED DRUG PRODUCT: TEGRETOL-XR
Active Ingredient: CARBAMAZEPINE
Strength: 200MG
Dosage Form/Route: TABLET, EXTENDED RELEASE;ORAL
Application: N020234 | Product #002 | TE Code: AB
Applicant: NOVARTIS PHARMACEUTICALS CORP
Approved: Mar 25, 1996 | RLD: Yes | RS: No | Type: RX